FAERS Safety Report 6994543-4 (Version None)
Quarter: 2010Q3

REPORT INFORMATION
  Report Type: 
  Country: None (occurrence: None)
  Receive Date: 20100915
  Receipt Date: 20100915
  Transmission Date: 20110219
  Serious: Yes (Hospitalization)
  Sender: FDA-Public Use
  Company Number: None

PATIENT
  Sex: Male
  Weight: 98.3 kg

DRUGS (2)
  1. CYTARABINE [Suspect]
     Dosage: 36800 MG
     Dates: end: 20100801
  2. ETOPOSIDE [Suspect]
     Dosage: 3360 MG
     Dates: end: 20100801

REACTIONS (6)
  - ABDOMINAL PAIN [None]
  - DIARRHOEA [None]
  - FEBRILE NEUTROPENIA [None]
  - GASTROINTESTINAL DISORDER [None]
  - GASTROINTESTINAL OEDEMA [None]
  - PYREXIA [None]
